FAERS Safety Report 9957383 (Version 1)
Quarter: 2014Q1

REPORT INFORMATION
  Report Type: Report from Study
  Country: US (occurrence: US)
  Receive Date: 20140304
  Receipt Date: 20140304
  Transmission Date: 20141002
  Serious: No
  Sender: FDA-Public Use
  Company Number: US-ABBVIE-13P-163-1094435-00

PATIENT
  Age: 59 Year
  Sex: Male
  Weight: 71.28 kg

DRUGS (9)
  1. HUMIRA [Suspect]
     Indication: CROHN^S DISEASE
     Dosage: ONE TIME DOSE
     Route: 058
     Dates: start: 20130515, end: 20130515
  2. HUMIRA [Suspect]
  3. PREDNISONE [Concomitant]
  4. FUROSEMIDE [Concomitant]
  5. PROTONIX [Concomitant]
  6. CALCIUM [Concomitant]
  7. L-GLUTAMINE [Concomitant]
  8. VITAMIN D [Concomitant]
  9. FOLIC ACID [Concomitant]

REACTIONS (6)
  - Injection site induration [Recovered/Resolved]
  - Fluid retention [Not Recovered/Not Resolved]
  - Joint swelling [Not Recovered/Not Resolved]
  - Local swelling [Not Recovered/Not Resolved]
  - Vasodilatation [Not Recovered/Not Resolved]
  - Back pain [Recovered/Resolved]
